FAERS Safety Report 8319873-5 (Version None)
Quarter: 2012Q2

REPORT INFORMATION
  Report Type: 
  Country: None (occurrence: None)
  Receive Date: 20120427
  Receipt Date: 20120420
  Transmission Date: 20120825
  Serious: Yes (Death, Hospitalization)
  Sender: FDA-Public Use
  Company Number: GB-ABBOTT-12P-167-0902295-00

PATIENT
  Sex: Female

DRUGS (4)
  1. HUMIRA [Suspect]
     Indication: RHEUMATOID ARTHRITIS
     Route: 058
     Dates: start: 20070910
  2. METHOTREXATE [Concomitant]
     Route: 048
  3. METHOTREXATE [Suspect]
     Indication: PRODUCT USED FOR UNKNOWN INDICATION
  4. MELOXICAM [Concomitant]
     Indication: PRODUCT USED FOR UNKNOWN INDICATION

REACTIONS (20)
  - CARDIAC FAILURE CONGESTIVE [None]
  - MYOCARDIAL INFARCTION [None]
  - GENERAL PHYSICAL HEALTH DETERIORATION [None]
  - PLEURAL EFFUSION [None]
  - HYPOTENSION [None]
  - ANASTOMOTIC ULCER [None]
  - GASTROINTESTINAL HAEMORRHAGE [None]
  - AORTIC VALVE INCOMPETENCE [None]
  - DUODENAL ULCER [None]
  - SHOCK [None]
  - MELAENA [None]
  - PALLOR [None]
  - HYPOVOLAEMIA [None]
  - ANAEMIA [None]
  - PERICARDIAL EFFUSION [None]
  - AORTIC STENOSIS [None]
  - PULMONARY MASS [None]
  - HAEMOPTYSIS [None]
  - INFECTIOUS PLEURAL EFFUSION [None]
  - LEFT VENTRICULAR DYSFUNCTION [None]
